FAERS Safety Report 20625311 (Version 1)
Quarter: 2022Q1

REPORT INFORMATION
  Report Type: Spontaneous
  Country: NL (occurrence: NL)
  Receive Date: 20220323
  Receipt Date: 20220323
  Transmission Date: 20220424
  Serious: Yes (Other)
  Sender: FDA-Public Use
  Company Number: None

PATIENT
  Age: 59 Year
  Sex: Female
  Weight: 90 kg

DRUGS (2)
  1. TAMOXIFEN [Suspect]
     Active Substance: TAMOXIFEN
     Indication: Breast cancer
     Dosage: 20 MILLIGRAM DAILY; 1 X PER DAY 1 PIECE, THERAPY END DATE : ASKU; BRAND NAME NOT SPECIFIED
     Dates: start: 20210913
  2. CAPECITABINE [Suspect]
     Active Substance: CAPECITABINE
     Indication: Breast cancer
     Dosage: 3600 MILLIGRAM DAILY; 2X A DAY 1800MG, THERAPY END DATE : ASKU, CAPECITABINE TABLET FO; BRAND NAME N
     Dates: start: 2021

REACTIONS (1)
  - Deep vein thrombosis [Recovered/Resolved]

NARRATIVE: CASE EVENT DATE: 20220220
